FAERS Safety Report 5376623-2 (Version None)
Quarter: 2007Q2

REPORT INFORMATION
  Report Type: 
  Country: None (occurrence: None)
  Receive Date: 20070628
  Receipt Date: 20070619
  Transmission Date: 20071010
  Serious: Yes (Death, Hospitalization)
  Sender: FDA-Public Use
  Company Number: N0476397A

PATIENT
  Age: 33 Year
  Sex: Male

DRUGS (4)
  1. PARACETAMOL (FORMULATION UNKNOWN) (GENERIC) (ACETAMINOPHEN) [Suspect]
  2. LEVOFLOXACIN [Suspect]
  3. CLARITHROMYCIN [Suspect]
  4. PHENOBARBITAL TAB [Suspect]

REACTIONS (3)
  - MULTI-ORGAN FAILURE [None]
  - STEVENS-JOHNSON SYNDROME [None]
  - TOXIC EPIDERMAL NECROLYSIS [None]
